FAERS Safety Report 7142293-6 (Version None)
Quarter: 2010Q4

REPORT INFORMATION
  Report Type: 
  Country: None (occurrence: None)
  Receive Date: 20101207
  Receipt Date: 20101129
  Transmission Date: 20110411
  Serious: Yes (Other)
  Sender: FDA-Public Use
  Company Number: US-PFIZER INC-2010160012

PATIENT
  Sex: Male
  Weight: 70 kg

DRUGS (2)
  1. LIPITOR [Suspect]
     Indication: CORONARY ARTERIAL STENT INSERTION
     Dosage: 80 MG, DAILY
     Route: 048
     Dates: start: 20101015, end: 20101120
  2. AVALIDE [Concomitant]
     Indication: HYPERTENSION
     Dosage: UNK

REACTIONS (2)
  - BLOOD CHOLESTEROL ABNORMAL [None]
  - LOW DENSITY LIPOPROTEIN ABNORMAL [None]
